FAERS Safety Report 23107585 (Version 2)
Quarter: 2023Q4

REPORT INFORMATION
  Report Type: Spontaneous
  Country: US (occurrence: US)
  Receive Date: 20231026
  Receipt Date: 20231218
  Transmission Date: 20240110
  Serious: No
  Sender: FDA-Public Use
  Company Number: US-BRISTOL-MYERS SQUIBB COMPANY-2023-149636

PATIENT
  Age: 77 Year
  Sex: Female

DRUGS (1)
  1. ORENCIA [Suspect]
     Active Substance: ABATACEPT
     Indication: Rheumatoid arthritis
     Dosage: AT WEEK 4, THEN EVERY 4WEEKS THEREAFTER.
     Route: 042
     Dates: start: 202304

REACTIONS (2)
  - Arthralgia [Unknown]
  - Drug ineffective [Unknown]
